FAERS Safety Report 6633847-1 (Version None)
Quarter: 2010Q1

REPORT INFORMATION
  Report Type: 
  Country: None (occurrence: None)
  Receive Date: 20100315
  Receipt Date: 20100301
  Transmission Date: 20100710
  Serious: No
  Sender: FDA-Public Use
  Company Number: US-B.I. PHARMACEUTICALS,INC./RIDGEFIELD-2010-BP-01448BP

PATIENT
  Sex: Female

DRUGS (19)
  1. SPIRIVA [Suspect]
     Indication: CHRONIC OBSTRUCTIVE PULMONARY DISEASE
     Dosage: 18 MCG
     Route: 055
     Dates: start: 20100126
  2. ATENOLOL [Concomitant]
     Indication: CARDIAC DISORDER
     Dosage: 50 MG
  3. AVAPRO [Concomitant]
     Indication: BLOOD CHOLESTEROL
     Dosage: 300 MG
  4. NEXIUM [Concomitant]
     Dosage: 800 MG
  5. POTASSIUM CHLORIDE (KLOR-CON) [Concomitant]
     Dosage: 200 MG
  6. NORCO [Concomitant]
     Indication: PAIN
  7. POLYETHYLENE GLYCOL [Concomitant]
     Indication: CONSTIPATION
     Dosage: 9 G
  8. DIAZEPAM [Concomitant]
  9. SYNTHROID [Concomitant]
     Dosage: 25 MG
  10. MIRAPEX [Concomitant]
     Indication: RESTLESS LEGS SYNDROME
     Dosage: 0.5 MG
  11. LIPITOR [Concomitant]
     Dosage: 20 MG
  12. HYDROXYZINE HCL [Concomitant]
     Indication: URTICARIA
  13. COUMADIN [Concomitant]
  14. ADVAIR DISKUS 100/50 [Concomitant]
     Indication: CHRONIC OBSTRUCTIVE PULMONARY DISEASE
     Dosage: 2 PUF
  15. COMBIVENT [Concomitant]
     Indication: CHRONIC OBSTRUCTIVE PULMONARY DISEASE
     Dosage: 8 PUF
  16. BUMETANIDE [Concomitant]
     Indication: DIURETIC THERAPY
     Dosage: 1 MG
  17. IRON [Concomitant]
  18. I-CAPS [Concomitant]
  19. CENTRUM SILVER [Concomitant]

REACTIONS (2)
  - ABDOMINAL PAIN UPPER [None]
  - MUSCULOSKELETAL PAIN [None]
